FAERS Safety Report 25365956 (Version 1)
Quarter: 2025Q2

REPORT INFORMATION
  Report Type: Spontaneous
  Country: US (occurrence: US)
  Receive Date: 20250528
  Receipt Date: 20250528
  Transmission Date: 20250716
  Serious: Yes (Hospitalization, Other)
  Sender: BRISTOL-MYERS SQUIBB COMPANY
  Company Number: US-BRISTOL-MYERS SQUIBB COMPANY-2025-073148

PATIENT
  Age: 76 Year
  Sex: Female

DRUGS (2)
  1. POMALYST [Suspect]
     Active Substance: POMALIDOMIDE
     Indication: Plasma cell myeloma
     Dosage: 1 TIME A DAY FOR 21 DAYS ON THEN 7 DAYS OFF.
     Route: 048
     Dates: start: 202409
  2. POMALYST [Suspect]
     Active Substance: POMALIDOMIDE
     Indication: Plasmacytoma

REACTIONS (4)
  - Malignant melanoma [Unknown]
  - Cerebral cyst [Unknown]
  - Headache [Unknown]
  - Nausea [Unknown]

NARRATIVE: CASE EVENT DATE: 20250519
